FAERS Safety Report 16122723 (Version 1)
Quarter: 2019Q1

REPORT INFORMATION
  Report Type: Spontaneous
  Country: US (occurrence: US)
  Receive Date: 20190327
  Receipt Date: 20190327
  Transmission Date: 20190418
  Serious: Yes (Other)
  Sender: FDA-Public Use
  Company Number: US-SA-2019SA081674

PATIENT
  Sex: Male

DRUGS (13)
  1. PRALUENT [Suspect]
     Active Substance: ALIROCUMAB
     Indication: CARDIOVASCULAR DISORDER
     Dosage: 150 MG, QOW
     Route: 058
  2. METOPROLOL SUCCINATE. [Concomitant]
     Active Substance: METOPROLOL SUCCINATE
  3. TOPROL XL [Concomitant]
     Active Substance: METOPROLOL SUCCINATE
  4. LIVALO [Concomitant]
     Active Substance: PITAVASTATIN CALCIUM
  5. MEMANTINE. [Concomitant]
     Active Substance: MEMANTINE
  6. MULTIVITAMINS [VITAMINS NOS] [Concomitant]
     Active Substance: VITAMINS
  7. ASPIRIN (E.C.) [Concomitant]
     Active Substance: ASPIRIN
  8. LATANOPROST. [Concomitant]
     Active Substance: LATANOPROST
  9. DUTASTERIDE;TAMSULOSIN [Concomitant]
  10. AMLODIPINE BESILATE [Concomitant]
     Active Substance: AMLODIPINE BESYLATE
  11. CLOPIDOGREL [Concomitant]
     Active Substance: CLOPIDOGREL BISULFATE
  12. HUMALOG [Concomitant]
     Active Substance: INSULIN LISPRO
  13. EZETIMIBE. [Concomitant]
     Active Substance: EZETIMIBE

REACTIONS (2)
  - Cerebrovascular accident [Unknown]
  - Brain injury [Unknown]
